FAERS Safety Report 16011964 (Version 1)
Quarter: 2019Q1

REPORT INFORMATION
  Report Type: Spontaneous
  Country: US (occurrence: US)
  Receive Date: 20190131
  Receipt Date: 20190131
  Transmission Date: 20190418
  Serious: No
  Sender: FDA-Public Use
  Company Number: None

PATIENT

DRUGS (2)
  1. ESTRADIOL ESTRADIOL VAGINAL CREAM [Suspect]
     Active Substance: ESTRADIOL
  2. DIVIGEL [Suspect]
     Active Substance: ESTRADIOL
     Route: 061

REACTIONS (1)
  - Product dispensing error [None]
